FAERS Safety Report 15169266 (Version 4)
Quarter: 2018Q3

REPORT INFORMATION
  Report Type: Report from Study
  Country: MW (occurrence: MW)
  Receive Date: 20180720
  Receipt Date: 20180927
  Transmission Date: 20181010
  Serious: Yes (Life-Threatening, Hospitalization, Other)
  Sender: FDA-Public Use
  Company Number: MW-BRISTOL-MYERS SQUIBB COMPANY-BMS-2018-068119

PATIENT
  Age: 31 Year
  Sex: Male
  Weight: 67.3 kg

DRUGS (3)
  1. PACLITAXEL. [Suspect]
     Active Substance: PACLITAXEL
     Indication: ANTIRETROVIRAL THERAPY
     Dosage: 1 DF, UNK
     Route: 042
     Dates: start: 20151201, end: 20160125
  2. ETOPOSIDE. [Suspect]
     Active Substance: ETOPOSIDE
     Indication: ANTIRETROVIRAL THERAPY
     Dosage: 100 MG, UNK
     Route: 048
     Dates: start: 20150527, end: 20150916
  3. EFAVIRENZ, EMTRICITABINE, AND TENOFOVIR DISOPROXIL FUMARATE [Suspect]
     Active Substance: EFAVIRENZ\EMTRICITABINE\TENOFOVIR DISOPROXIL FUMARATE
     Indication: ANTIRETROVIRAL THERAPY
     Dosage: 110 MG, UNK
     Route: 048
     Dates: start: 20150527, end: 20160208

REACTIONS (2)
  - Blood creatinine increased [Recovered/Resolved]
  - Malaria [Recovered/Resolved]

NARRATIVE: CASE EVENT DATE: 20160209
